FAERS Safety Report 19756014 (Version 2)
Quarter: 2021Q3

REPORT INFORMATION
  Report Type: Report from Study
  Country: US (occurrence: US)
  Receive Date: 20210827
  Receipt Date: 20210831
  Transmission Date: 20211014
  Serious: Yes (Hospitalization, Other)
  Sender: FDA-Public Use
  Company Number: US-PFIZER INC-202101069046

PATIENT
  Age: 52 Year
  Sex: Male

DRUGS (5)
  1. AMBRISENTAN [Suspect]
     Active Substance: AMBRISENTAN
     Indication: PULMONARY ARTERIAL HYPERTENSION
     Dosage: 10 MG, 1X/DAY (10MG, QD)
     Dates: start: 20190826
  2. SILDENAFIL CITRATE. [Suspect]
     Active Substance: SILDENAFIL CITRATE
     Indication: PULMONARY ARTERIAL HYPERTENSION
     Dosage: 80 MG, 3X/DAY (80M,TID)
     Dates: start: 20210605
  3. REMODULIN [Suspect]
     Active Substance: TREPROSTINIL
     Indication: PULMONARY ARTERIAL HYPERTENSION
     Dosage: 96.7 NG, 1X/DAY (96.7 NG, QD)
     Route: 058
     Dates: start: 20200630
  4. REMODULIN [Suspect]
     Active Substance: TREPROSTINIL
     Dosage: 105.6 UG/KG (105.6 NG/KG/MIN)
     Route: 058
  5. REMODULIN [Suspect]
     Active Substance: TREPROSTINIL
     Dosage: 120 NG,Q1MINUTE
     Dates: start: 202006

REACTIONS (4)
  - Colon cancer [Unknown]
  - Haemorrhage [Not Recovered/Not Resolved]
  - Pulmonary oedema [Unknown]
  - Off label use [Unknown]

NARRATIVE: CASE EVENT DATE: 20210702
